FAERS Safety Report 24725326 (Version 2)
Quarter: 2024Q4

REPORT INFORMATION
  Report Type: Spontaneous
  Country: US (occurrence: US)
  Receive Date: 20241212
  Receipt Date: 20241226
  Transmission Date: 20250114
  Serious: No
  Sender: ROCHE
  Company Number: US-ROCHE-10000151514

PATIENT
  Age: 16 Year
  Sex: Female
  Weight: 63.5 kg

DRUGS (4)
  1. XOLAIR [Suspect]
     Active Substance: OMALIZUMAB
     Indication: Asthma
     Route: 058
     Dates: start: 20240807
  2. XOLAIR [Suspect]
     Active Substance: OMALIZUMAB
     Indication: Chronic spontaneous urticaria
  3. DUPIXENT [Concomitant]
     Active Substance: DUPILUMAB
     Indication: Urticaria
     Route: 030
     Dates: start: 20231112
  4. TACROLIMUS [Concomitant]
     Active Substance: TACROLIMUS
     Indication: Urticaria
     Dosage: 2 TABLETS PER DOSE
     Route: 048
     Dates: start: 202411

REACTIONS (6)
  - Device defective [Unknown]
  - Product complaint [Unknown]
  - Accidental exposure to product [Unknown]
  - Product dose omission issue [Unknown]
  - No adverse event [Unknown]
  - Device malfunction [Unknown]

NARRATIVE: CASE EVENT DATE: 20241129
